FAERS Safety Report 8367236-9 (Version None)
Quarter: 2012Q2

REPORT INFORMATION
  Report Type: 
  Country: None (occurrence: None)
  Receive Date: 20120517
  Receipt Date: 20120508
  Transmission Date: 20120825
  Serious: No
  Sender: FDA-Public Use
  Company Number: US-PFIZER INC-2012107676

PATIENT
  Age: 67 Year
  Sex: Male

DRUGS (2)
  1. EPIPEN [Suspect]
     Dosage: UNK
  2. EPIPEN [Suspect]
     Dosage: UNK

REACTIONS (3)
  - INJECTION SITE HAEMORRHAGE [None]
  - EXPIRED DRUG ADMINISTERED [None]
  - ACCIDENTAL EXPOSURE [None]
